FAERS Safety Report 7744650-3 (Version None)
Quarter: 2011Q3

REPORT INFORMATION
  Report Type: 
  Country: None (occurrence: None)
  Receive Date: 20110912
  Receipt Date: 20110829
  Transmission Date: 20111222
  Serious: Yes (Other)
  Sender: FDA-Public Use
  Company Number: PHHY2011JP10675

PATIENT
  Sex: Male
  Weight: 59 kg

DRUGS (12)
  1. WARFARIN SODIUM [Concomitant]
     Dosage: 2 MG
     Route: 048
  2. DIOVAN [Suspect]
     Indication: HYPERTENSION
     Dosage: 80 MG, QD
     Route: 048
     Dates: start: 20090803, end: 20091125
  3. DIOVAN [Suspect]
     Dosage: 120 MG, QD IN TWO SEPERATE DOSES,
     Route: 048
     Dates: start: 20091126
  4. CARVEDILOL [Concomitant]
     Dosage: 2.5 MG
     Route: 048
     Dates: start: 20091029
  5. ADALAT [Concomitant]
     Dosage: 60 MG
     Route: 048
     Dates: start: 20100315
  6. NORVASC [Concomitant]
     Dosage: 10 MG
     Route: 048
     Dates: end: 20100315
  7. ANPLAG [Concomitant]
     Dosage: 300 MG
     Route: 048
     Dates: start: 20090803
  8. NORVASC [Concomitant]
     Dosage: 5 MG
     Route: 048
     Dates: start: 20090803
  9. WARFARIN SODIUM [Concomitant]
     Dosage: 2.5 MG
     Route: 048
     Dates: start: 20090803
  10. LASIX [Concomitant]
     Dosage: 20 MG
     Route: 048
     Dates: start: 20100907
  11. HYDROCHLOROTHIAZIDE [Concomitant]
     Dosage: 12.5 MG
     Route: 048
     Dates: start: 20100215
  12. GRANDAXIN [Concomitant]
     Dosage: 100 MG
     Route: 048
     Dates: start: 20090803

REACTIONS (4)
  - FALL [None]
  - PROSTATE CANCER [None]
  - BLOOD PRESSURE DIASTOLIC DECREASED [None]
  - FRACTURE [None]
